FAERS Safety Report 18873309 (Version 2)
Quarter: 2021Q1

REPORT INFORMATION
  Report Type: Report from Study
  Country: TR (occurrence: TR)
  Receive Date: 20210210
  Receipt Date: 20210225
  Transmission Date: 20210420
  Serious: Yes (Hospitalization, Other)
  Sender: FDA-Public Use
  Company Number: TR-REGENERON PHARMACEUTICALS, INC.-2020-97727

PATIENT

DRUGS (6)
  1. TIOTROPIUM BROMIDE MONOHYDRATE [Concomitant]
     Active Substance: TIOTROPIUM BROMIDE MONOHYDRATE
     Indication: LUNG NEOPLASM MALIGNANT
     Dosage: 18 ?G, QD
     Route: 045
     Dates: start: 20190711
  2. METHYLPREDNISOLONE. [Concomitant]
     Active Substance: METHYLPREDNISOLONE
     Indication: PERIPHERAL SWELLING
     Dosage: 4 MG, QD
     Route: 048
     Dates: start: 20200608
  3. ARVELES [Concomitant]
     Active Substance: DEXKETOPROFEN
     Indication: PAIN PROPHYLAXIS
     Dosage: 25 MG, PRN
     Route: 048
     Dates: start: 20190402
  4. CEMIPLIMAB [Suspect]
     Active Substance: CEMIPLIMAB
     Indication: NON-SMALL CELL LUNG CANCER
     Dosage: 350 MG, Q3W
     Route: 042
     Dates: start: 20190712, end: 20201127
  5. PROPILTIOURASIL [Concomitant]
     Indication: GOITRE
     Dosage: 50 MG, QD
     Route: 048
     Dates: start: 20190517
  6. HYDROXYCHLOROQUINE SULFATE. [Concomitant]
     Active Substance: HYDROXYCHLOROQUINE SULFATE
     Indication: PERIPHERAL SWELLING
     Dosage: 200 MG, QD
     Route: 048
     Dates: start: 20200724

REACTIONS (1)
  - Hepatitis toxic [Recovered/Resolved]

NARRATIVE: CASE EVENT DATE: 20201230
